FAERS Safety Report 23991694 (Version 1)
Quarter: 2024Q2

REPORT INFORMATION
  Report Type: Spontaneous
  Country: CN (occurrence: CN)
  Receive Date: 20240619
  Receipt Date: 20240619
  Transmission Date: 20240716
  Serious: Yes (Other)
  Sender: FDA-Public Use
  Company Number: CN-002147023-NVSC2024CN127063

PATIENT
  Age: 60 Year
  Sex: Male
  Weight: 57 kg

DRUGS (1)
  1. DEXAMETHASONE\TOBRAMYCIN [Suspect]
     Active Substance: DEXAMETHASONE\TOBRAMYCIN
     Indication: Cataract
     Dosage: 0.1 ML, QID
     Route: 047
     Dates: start: 20240519, end: 20240520

REACTIONS (3)
  - Corneal opacity [Unknown]
  - Visual acuity reduced [Recovering/Resolving]
  - Corneal oedema [Unknown]

NARRATIVE: CASE EVENT DATE: 20240520
